FAERS Safety Report 9224095 (Version 1)
Quarter: 2013Q1

REPORT INFORMATION
  Report Type: Spontaneous
  Country: US (occurrence: None)
  Receive Date: 20120830
  Receipt Date: 20120830
  Transmission Date: 20140127
  Serious: Yes (Other)
  Sender: FDA-Public Use
  Company Number: PHHY2011US62932

PATIENT
  Sex: Female

DRUGS (2)
  1. EXFORGE (VALSARTAN, AMLODIPINE) UNKNOWN [Suspect]
  2. DRUG THERAPY NOS (DRUG THERAPY NOS) [Suspect]

REACTIONS (5)
  - Hypertension [None]
  - Insomnia [None]
  - Cough [None]
  - Malaise [None]
  - Drug ineffective [None]
